FAERS Safety Report 15262549 (Version 4)
Quarter: 2020Q1

REPORT INFORMATION
  Report Type: Spontaneous
  Country: US (occurrence: US)
  Receive Date: 20180809
  Receipt Date: 20200226
  Transmission Date: 20200409
  Serious: Yes (Hospitalization, Other)
  Sender: FDA-Public Use
  Company Number: US-BIOMARINAP-US-2018-119345

PATIENT
  Age: 27 Year
  Sex: Female

DRUGS (6)
  1. ROXICODONE [Concomitant]
     Active Substance: OXYCODONE HYDROCHLORIDE
     Indication: PAIN
  2. ASPIRIN [ACETYLSALICYLIC ACID] [Concomitant]
     Active Substance: ASPIRIN
     Indication: PAIN
  3. ALDURAZYME [Suspect]
     Active Substance: LARONIDASE
     Indication: MUCOPOLYSACCHARIDOSIS I
     Dosage: UNK
     Route: 041
     Dates: start: 20030611
  4. ALDURAZYME [Suspect]
     Active Substance: LARONIDASE
     Dosage: UNK, QW
     Route: 041
     Dates: start: 20180914
  5. FLEXERIL [CEFIXIME] [Concomitant]
     Active Substance: CEFIXIME
     Indication: MUSCLE SPASMS
  6. LASIX [Concomitant]
     Active Substance: FUROSEMIDE
     Indication: CARDIAC DISORDER

REACTIONS (24)
  - Ear infection [Unknown]
  - Umbilical hernia [Recovered/Resolved]
  - Protein total decreased [Unknown]
  - Urinary sediment present [Unknown]
  - Strangulated hernia [Not Recovered/Not Resolved]
  - Cholecystitis acute [Recovered/Resolved]
  - Blood creatinine decreased [Unknown]
  - Blood urine present [Unknown]
  - Urine leukocyte esterase positive [Unknown]
  - White blood cells urine positive [Unknown]
  - Red blood cells urine positive [Unknown]
  - Pleural effusion [Unknown]
  - Blood urea decreased [Unknown]
  - Specific gravity urine increased [Unknown]
  - Platelet count decreased [Unknown]
  - Contusion [Unknown]
  - Atelectasis [Unknown]
  - Blood glucose decreased [Unknown]
  - Abdominal pain [Unknown]
  - Blood albumin decreased [Unknown]
  - Urine abnormality [Unknown]
  - Blood calcium decreased [Unknown]
  - Urobilinogen urine increased [Unknown]
  - Red blood cell count decreased [Unknown]

NARRATIVE: CASE EVENT DATE: 20190819
